FAERS Safety Report 10109228 (Version 3)
Quarter: 2015Q2

REPORT INFORMATION
  Report Type: Spontaneous
  Country: US (occurrence: None)
  Receive Date: 20140421
  Receipt Date: 20150420
  Transmission Date: 20150821
  Serious: Yes (Other)
  Sender: FDA-Public Use
  Company Number: AEGR000303

PATIENT
  Age: 58 Year
  Sex: Female
  Weight: 96.6 kg

DRUGS (13)
  1. ASPIRIN. [Concomitant]
     Active Substance: ASPIRIN
  2. RANEXA (RANOLAZINE) [Concomitant]
  3. EFFEXOR [Concomitant]
     Active Substance: VENLAFAXINE HYDROCHLORIDE
  4. BENADRYL [Concomitant]
     Active Substance: DIPHENHYDRAMINE HYDROCHLORIDE
  5. NITROGLYCERIN (GLYCERYL TRINITRATE) [Concomitant]
     Active Substance: NITROGLYCERIN
  6. LORAZEPAM. [Concomitant]
     Active Substance: LORAZEPAM
  7. JUXTAPID [Suspect]
     Active Substance: LOMITAPIDE MESYLATE
     Indication: TYPE IIA HYPERLIPIDAEMIA
     Route: 048
     Dates: start: 20131211, end: 20140121
  8. VITAMIN E (TOCOPHERYL ACID SUCCINATE) [Concomitant]
  9. CALCIUM WITH VITAMIN D (CALCIUM CARBONATE CHOLECALCIFEROL) [Concomitant]
  10. OMEGA 3 6 9 (OMEGA 9 FATTY ACIDS, OMEGA-3 FATTY ACIDS, OMEGA-6 FATTY ACIDS) [Concomitant]
  11. RISPERIDONE. [Concomitant]
     Active Substance: RISPERIDONE
  12. OMEPRAZOLE. [Concomitant]
     Active Substance: OMEPRAZOLE
  13. VITAMIN B12 [Concomitant]
     Active Substance: CYANOCOBALAMIN

REACTIONS (7)
  - Weight decreased [None]
  - Hepatic enzyme increased [None]
  - Abdominal pain upper [None]
  - Decreased appetite [None]
  - Muscle spasms [None]
  - Eructation [None]
  - Nausea [None]

NARRATIVE: CASE EVENT DATE: 201312
